FAERS Safety Report 6661372-0 (Version None)
Quarter: 2010Q1

REPORT INFORMATION
  Report Type: 
  Country: None (occurrence: None)
  Receive Date: 20100331
  Receipt Date: 20100324
  Transmission Date: 20100710
  Serious: Yes (Other)
  Sender: FDA-Public Use
  Company Number: PHEH2010US03298

PATIENT
  Sex: Female

DRUGS (1)
  1. FEMARA [Suspect]
     Dosage: 2.5 DAILY
     Route: 048
     Dates: start: 20091001, end: 20100324

REACTIONS (3)
  - ARTHROPATHY [None]
  - FALL [None]
  - KNEE OPERATION [None]
